FAERS Safety Report 24998137 (Version 1)
Quarter: 2025Q1

REPORT INFORMATION
  Report Type: Spontaneous
  Country: US (occurrence: US)
  Receive Date: 20250222
  Receipt Date: 20250222
  Transmission Date: 20250408
  Serious: No
  Sender: SANOFI AVENTIS
  Company Number: US-SA-2025SA045758

PATIENT
  Age: 53 Year
  Sex: Female
  Weight: 95.45 kg

DRUGS (4)
  1. DUPIXENT [Suspect]
     Active Substance: DUPILUMAB
     Indication: Psoriasis
     Dosage: 300 MG, QOW
     Route: 058
  2. OTEZLA [Concomitant]
     Active Substance: APREMILAST
  3. VITAMIN D3 [Concomitant]
     Active Substance: CHOLECALCIFEROL
  4. MOUNJARO [Concomitant]
     Active Substance: TIRZEPATIDE

REACTIONS (4)
  - Skin fissures [Recovering/Resolving]
  - Dry skin [Recovering/Resolving]
  - Drug ineffective [Unknown]
  - Product use in unapproved indication [Unknown]
